FAERS Safety Report 6432924-8 (Version None)
Quarter: 2009Q4

REPORT INFORMATION
  Report Type: 
  Country: None (occurrence: None)
  Receive Date: 20091109
  Receipt Date: 20091028
  Transmission Date: 20100525
  Serious: Yes (Life-Threatening, Hospitalization)
  Sender: FDA-Public Use
  Company Number: DE-GILEAD-E2B_00000446

PATIENT
  Sex: Male
  Weight: 61.4 kg

DRUGS (6)
  1. AMBRISENTAN [Suspect]
     Indication: PULMONARY ARTERIAL HYPERTENSION
     Dosage: 5MG PER DAY
     Route: 048
     Dates: start: 20090609, end: 20090626
  2. AMBRISENTAN [Suspect]
     Route: 048
  3. FALITHROM [Concomitant]
     Indication: PULMONARY ARTERIAL HYPERTENSION
     Route: 048
     Dates: start: 20090906, end: 20090926
  4. XIPAMIDE [Concomitant]
     Indication: PULMONARY ARTERIAL HYPERTENSION
     Route: 048
     Dates: start: 20090609, end: 20090926
  5. DIGITOXIN INJ [Concomitant]
     Indication: PULMONARY ARTERIAL HYPERTENSION
     Route: 048
     Dates: start: 20090609, end: 20090926
  6. METOPROLOL SUCCINATE [Concomitant]
     Route: 048

REACTIONS (2)
  - RENAL FAILURE [None]
  - RIGHT VENTRICULAR FAILURE [None]
